FAERS Safety Report 25889804 (Version 2)
Quarter: 2025Q4

REPORT INFORMATION
  Report Type: Spontaneous
  Country: JP (occurrence: JP)
  Receive Date: 20251007
  Receipt Date: 20251009
  Transmission Date: 20260117
  Serious: Yes (Other)
  Sender: PFIZER
  Company Number: JP-PFIZER INC-202500195988

PATIENT
  Age: 66 Year
  Sex: Male

DRUGS (3)
  1. PACLITAXEL [Suspect]
     Active Substance: PACLITAXEL
     Indication: Metastases to lymph nodes
     Dosage: UNK
  2. PACLITAXEL [Suspect]
     Active Substance: PACLITAXEL
     Indication: Metastases to lung
  3. PACLITAXEL [Suspect]
     Active Substance: PACLITAXEL
     Indication: Skin angiosarcoma

REACTIONS (2)
  - Pneumothorax [Unknown]
  - Myelosuppression [Unknown]
